FAERS Safety Report 12951661 (Version 1)
Quarter: 2016Q4

REPORT INFORMATION
  Report Type: Spontaneous
  Country: US (occurrence: US)
  Receive Date: 20161117
  Receipt Date: 20161117
  Transmission Date: 20170207
  Serious: No
  Sender: FDA-Public Use
  Company Number: US-NOVOPROD-485534

PATIENT
  Age: 64 Year
  Sex: Female

DRUGS (2)
  1. METFORMIN [Suspect]
     Active Substance: METFORMIN HYDROCHLORIDE
     Indication: PRODUCT USED FOR UNKNOWN INDICATION
     Route: 048
  2. NOVOLOG [Suspect]
     Active Substance: INSULIN ASPART
     Indication: PRODUCT USED FOR UNKNOWN INDICATION
     Route: 058

REACTIONS (9)
  - Muscle spasms [Unknown]
  - Malaise [Unknown]
  - Back disorder [Unknown]
  - Hypoaesthesia [Unknown]
  - Limb discomfort [Unknown]
  - Arthritis [Unknown]
  - Arthropathy [Unknown]
  - Heart rate increased [Unknown]
  - Weight increased [Unknown]
